FAERS Safety Report 14772598 (Version 3)
Quarter: 2019Q3

REPORT INFORMATION
  Report Type: Spontaneous
  Country: FR (occurrence: FR)
  Receive Date: 20180418
  Receipt Date: 20190925
  Transmission Date: 20191004
  Serious: Yes (Congenital Anomaly, Other)
  Sender: FDA-Public Use
  Company Number: FR-ACCORD-065757

PATIENT

DRUGS (5)
  1. ACETYLSALICYLIC ACID [Concomitant]
     Active Substance: ASPIRIN
     Dosage: 100 MG/DAY
     Route: 064
  2. TACROLIMUS. [Suspect]
     Active Substance: TACROLIMUS
     Indication: IMMUNOSUPPRESSANT DRUG THERAPY
     Dosage: 6 MG, DAILY
     Route: 064
  3. PREDNISONE. [Suspect]
     Active Substance: PREDNISONE
     Indication: IMMUNOSUPPRESSANT DRUG THERAPY
     Dosage: 10 MG
     Route: 064
  4. PROGESTERONE. [Concomitant]
     Active Substance: PROGESTERONE
     Route: 064
  5. HEPARIN [Concomitant]
     Active Substance: HEPARIN SODIUM
     Dosage: 4000 IU/DAY
     Route: 064

REACTIONS (11)
  - Spleen malformation [Unknown]
  - Dilatation ventricular [Unknown]
  - Congenital central nervous system anomaly [Unknown]
  - Ventricular enlargement [Unknown]
  - Congenital hydrocephalus [Unknown]
  - Encephalopathy [Unknown]
  - Thrombocytopenia [Unknown]
  - Congenital toxoplasmosis [Unknown]
  - Congenital anomaly [Unknown]
  - Foetal exposure during pregnancy [Unknown]
  - Bone disorder [Unknown]
